FAERS Safety Report 22328430 (Version 2)
Quarter: 2023Q2

REPORT INFORMATION
  Report Type: Spontaneous
  Country: US (occurrence: US)
  Receive Date: 20230517
  Receipt Date: 20230616
  Transmission Date: 20230721
  Serious: No
  Sender: FDA-Public Use
  Company Number: US-JNJFOC-20230527408

PATIENT
  Age: 31 Year
  Sex: Female

DRUGS (1)
  1. SPRAVATO [Suspect]
     Active Substance: ESKETAMINE
     Indication: Major depression
     Route: 065

REACTIONS (5)
  - Mood altered [Unknown]
  - Depression [Unknown]
  - Therapeutic response decreased [Unknown]
  - Sensory disturbance [Unknown]
  - Discomfort [Unknown]
